FAERS Safety Report 5744500-0 (Version None)
Quarter: 2008Q2

REPORT INFORMATION
  Report Type: 
  Country: None (occurrence: None)
  Receive Date: 20080520
  Receipt Date: 20080520
  Transmission Date: 20081010
  Serious: Yes (Hospitalization)
  Sender: FDA-Public Use
  Company Number: ES-BAYER-200810648GPV

PATIENT
  Age: 85 Year
  Sex: Female

DRUGS (3)
  1. SORAFENIB [Suspect]
     Indication: RENAL CELL CARCINOMA
     Dosage: TOTAL DAILY DOSE: 400 MG
     Route: 048
     Dates: start: 20060424, end: 20071128
  2. OMEPRAZOLE [Concomitant]
     Indication: PROPHYLAXIS
     Route: 048
     Dates: start: 20050401
  3. ATENOLOL [Concomitant]
     Indication: HYPERTENSION
     Route: 048
     Dates: start: 20050401

REACTIONS (3)
  - ANAEMIA [None]
  - RECTAL HAEMORRHAGE [None]
  - SIGMOIDITIS [None]
